FAERS Safety Report 5055123-3 (Version None)
Quarter: 2006Q3

REPORT INFORMATION
  Report Type: 
  Country: None (occurrence: None)
  Receive Date: 20060714
  Receipt Date: 20060621
  Transmission Date: 20061208
  Serious: Yes (Other)
  Sender: FDA-Public Use
  Company Number: 805#9#2006-00082

PATIENT
  Age: 3 Day
  Sex: Female

DRUGS (10)
  1. ALPROSTADIL [Suspect]
     Indication: HEART DISEASE CONGENITAL
     Dosage: SEE IMAGE
     Route: 041
     Dates: start: 20051114, end: 20051117
  2. ALPROSTADIL [Suspect]
     Indication: HEART DISEASE CONGENITAL
     Dosage: SEE IMAGE
     Route: 041
     Dates: start: 20051117, end: 20051118
  3. ALPROSTADIL [Suspect]
     Indication: HEART DISEASE CONGENITAL
     Dosage: SEE IMAGE
     Route: 041
     Dates: start: 20051118, end: 20051122
  4. FLOMEX SODIUM (FLOMEX SODIUM) [Concomitant]
  5. DIAZEPAM [Concomitant]
  6. PENTAZOCINE LACTATE [Concomitant]
  7. CALCIUM GLUCONATE [Concomitant]
  8. AMINOPHYLLINE (AMINOPHYLLINE) [Concomitant]
  9. MIDAZOLAM (MIDAZOLAM MALEATE) [Concomitant]
  10. HUMAN SERUM ALBUMIN (ALBUMIN NORMAL HUMAN SERUM) [Concomitant]

REACTIONS (1)
  - INFANTILE APNOEIC ATTACK [None]
